FAERS Safety Report 6496221-7 (Version None)
Quarter: 2009Q4

REPORT INFORMATION
  Report Type: 
  Country: None (occurrence: None)
  Receive Date: 20091214
  Receipt Date: 20091029
  Transmission Date: 20100525
  Serious: Yes (Other)
  Sender: FDA-Public Use
  Company Number: US-BRISTOL-MYERS SQUIBB COMPANY-14832315

PATIENT
  Age: 81 Year
  Sex: Female

DRUGS (3)
  1. ABILIFY [Suspect]
     Indication: BIPOLAR DISORDER
     Route: 048
     Dates: start: 20090901
  2. ABILIFY [Suspect]
     Indication: DEPRESSION
     Route: 048
     Dates: start: 20090901
  3. ABILIFY [Suspect]
     Indication: MOOD SWINGS
     Route: 048
     Dates: start: 20090901

REACTIONS (1)
  - AMNESIA [None]
